FAERS Safety Report 20572632 (Version 1)
Quarter: 2022Q1

REPORT INFORMATION
  Report Type: Spontaneous
  Country: US (occurrence: None)
  Receive Date: 20220308
  Receipt Date: 20220308
  Transmission Date: 20220423
  Serious: Yes (unspecified)
  Sender: FDA-Public Use
  Company Number: None

PATIENT
  Age: 83 Year
  Sex: Female
  Weight: 58.5 kg

DRUGS (2)
  1. FLOMAX [Suspect]
     Active Substance: TAMSULOSIN HYDROCHLORIDE
  2. Fenofibrate 54mg [Concomitant]
     Dates: start: 20220223, end: 20220223

REACTIONS (1)
  - Drug dispensed to wrong patient [None]

NARRATIVE: CASE EVENT DATE: 20220223
